FAERS Safety Report 25321127 (Version 2)
Quarter: 2025Q2

REPORT INFORMATION
  Report Type: Spontaneous
  Country: JP (occurrence: JP)
  Receive Date: 20250515
  Receipt Date: 20250518
  Transmission Date: 20250717
  Serious: Yes (Other)
  Sender: NOVARTIS
  Company Number: JP-002147023-NVSJ2025JP005251

PATIENT
  Sex: Male

DRUGS (2)
  1. COSENTYX [Suspect]
     Active Substance: SECUKINUMAB
     Indication: Psoriasis
     Dosage: UNK UNK, 4W
     Route: 058
     Dates: start: 2016
  2. COSENTYX [Suspect]
     Active Substance: SECUKINUMAB
     Indication: Psoriatic arthropathy
     Route: 058
     Dates: start: 20250514, end: 20250514

REACTIONS (5)
  - Prostate cancer [Unknown]
  - Metastases to bladder [Unknown]
  - Metastases to testicle [Unknown]
  - Metastases to lymph nodes [Unknown]
  - Off label use [Unknown]

NARRATIVE: CASE EVENT DATE: 20250401
